FAERS Safety Report 21670739 (Version 2)
Quarter: 2022Q4

REPORT INFORMATION
  Report Type: Spontaneous
  Country: DK (occurrence: None)
  Receive Date: 20221202
  Receipt Date: 20221220
  Transmission Date: 20230113
  Serious: Yes (Hospitalization)
  Sender: FDA-Public Use
  Company Number: 2022A389018

PATIENT
  Age: 34 Year
  Sex: Male
  Weight: 95 kg

DRUGS (8)
  1. DAPAGLIFLOZIN [Suspect]
     Active Substance: DAPAGLIFLOZIN
     Indication: Cardiac failure
     Route: 048
     Dates: start: 20220707, end: 20221111
  2. SPIRON [Concomitant]
     Indication: Cardiac failure
     Dates: start: 20191127
  3. FURIX [Concomitant]
     Indication: Diuretic therapy
     Dates: start: 20190628
  4. METOPROLOL SUCCINATE [Concomitant]
     Active Substance: METOPROLOL SUCCINATE
     Indication: Cardiac failure
     Dates: start: 20220504
  5. DIGOXIN [Concomitant]
     Active Substance: DIGOXIN
     Indication: Tachycardia
     Dosage: 187.5UG/INHAL DAILY
     Route: 048
     Dates: start: 20211213
  6. POTASSIUM CHLORIDE [Concomitant]
     Active Substance: POTASSIUM CHLORIDE
     Indication: Mineral supplementation
     Dates: start: 20190808
  7. ENTRESTO [Concomitant]
     Active Substance: SACUBITRIL\VALSARTAN
     Indication: Cardiac failure
     Dosage: 97+103 MG
     Route: 065
     Dates: start: 20200810
  8. ELIQUIS [Concomitant]
     Active Substance: APIXABAN
     Indication: Anticoagulant therapy
     Dates: start: 20120808

REACTIONS (2)
  - Erysipelas [Recovering/Resolving]
  - Skin infection [Recovering/Resolving]

NARRATIVE: CASE EVENT DATE: 20221102
